FAERS Safety Report 4456692-4 (Version None)
Quarter: 2004Q3

REPORT INFORMATION
  Report Type: 
  Country: None (occurrence: None)
  Receive Date: 20040923
  Receipt Date: 20040512
  Transmission Date: 20050211
  Serious: No
  Sender: FDA-Public Use
  Company Number: 200411694JP

PATIENT
  Age: 39 Year
  Sex: Female
  Weight: 42 kg

DRUGS (6)
  1. KETEK [Suspect]
     Indication: BRONCHITIS ACUTE
     Route: 048
     Dates: start: 20040507, end: 20040508
  2. MUCODYNE [Suspect]
     Indication: BRONCHITIS ACUTE
     Route: 048
     Dates: start: 20040507, end: 20040508
  3. ALLERGIN [Concomitant]
     Indication: BRONCHITIS ACUTE
     Route: 048
     Dates: start: 20040507, end: 20040508
  4. AUZEI [Concomitant]
     Indication: BRONCHITIS ACUTE
     Route: 048
     Dates: start: 20040507, end: 20040508
  5. HUSTAGIN [Concomitant]
     Indication: BRONCHITIS ACUTE
     Route: 048
     Dates: start: 20040507, end: 20040508
  6. SULPYRINE [Concomitant]
     Indication: BRONCHITIS ACUTE
     Route: 048
     Dates: start: 20040507, end: 20040508

REACTIONS (7)
  - DYSPNOEA [None]
  - HYPERSENSITIVITY [None]
  - OEDEMA PERIPHERAL [None]
  - PURPURA [None]
  - RASH [None]
  - RASH GENERALISED [None]
  - RASH PAPULAR [None]
